FAERS Safety Report 6364134-7 (Version None)
Quarter: 2009Q3

REPORT INFORMATION
  Report Type: 
  Country: None (occurrence: None)
  Receive Date: 20090919
  Receipt Date: 20090825
  Transmission Date: 20100115
  Serious: No
  Sender: FDA-Public Use
  Company Number: PR-ABBOTT-09P-131-0593696-00

PATIENT
  Sex: Female

DRUGS (12)
  1. HUMIRA [Suspect]
     Indication: DRUG USE FOR UNKNOWN INDICATION
     Route: 058
     Dates: start: 20090301
  2. HUMIRA [Suspect]
     Dosage: PRE-FILLED SYRINGE
     Dates: start: 20090301, end: 20090301
  3. WELLBUTRIN [Concomitant]
     Indication: DEPRESSION
     Route: 048
  4. KLONOPIN [Concomitant]
     Indication: ANXIETY
     Route: 048
  5. NEURONTIN [Concomitant]
     Indication: PAIN
  6. ULTRACET [Concomitant]
     Indication: PAIN
     Route: 048
  7. NABUMETONE [Concomitant]
     Indication: PAIN
     Route: 048
  8. ABILIFY [Concomitant]
     Indication: MAJOR DEPRESSION
     Route: 048
  9. AMBIEN [Concomitant]
     Indication: SLEEP DISORDER
     Route: 048
  10. DEPAKOTE ER [Concomitant]
     Indication: MIGRAINE
     Route: 048
  11. DEPAKOTE ER [Concomitant]
     Indication: CONVULSION
  12. RELPAX [Concomitant]
     Route: 048

REACTIONS (6)
  - DERMATITIS CONTACT [None]
  - HAEMATOMA [None]
  - INJECTION SITE INFLAMMATION [None]
  - INJECTION SITE NODULE [None]
  - INJECTION SITE PRURITUS [None]
  - INJECTION SITE WARMTH [None]
